FAERS Safety Report 16186945 (Version 1)
Quarter: 2019Q2

REPORT INFORMATION
  Report Type: Report from Study
  Country: TN (occurrence: TN)
  Receive Date: 20190411
  Receipt Date: 20190411
  Transmission Date: 20190711
  Serious: Yes (Death, Hospitalization)
  Sender: FDA-Public Use
  Company Number: TN-SA-2019SA101074

PATIENT
  Age: 54 Year
  Sex: Male

DRUGS (7)
  1. ANGIOTEC [ENALAPRIL MALEATE] [Concomitant]
  2. CLOPIDOGREL BISULFATE. [Suspect]
     Active Substance: CLOPIDOGREL BISULFATE
     Indication: STENT PLACEMENT
     Dosage: 75 MG, (1 DF), QD
     Route: 048
     Dates: start: 20161204
  3. CLOPIDOGREL BISULFATE. [Suspect]
     Active Substance: CLOPIDOGREL BISULFATE
     Indication: ANTIPLATELET THERAPY
  4. CORVASAL [MOLSIDOMINE] [Concomitant]
  5. CLOPIDOGREL BISULFATE. [Suspect]
     Active Substance: CLOPIDOGREL BISULFATE
     Indication: ACUTE CORONARY SYNDROME
  6. ATORVASTATIN [Concomitant]
     Active Substance: ATORVASTATIN
  7. CINCOR [Concomitant]

REACTIONS (4)
  - Product dose omission [Unknown]
  - Coronary angioplasty [Unknown]
  - Coronary artery disease [Unknown]
  - Cardiac arrest [Fatal]

NARRATIVE: CASE EVENT DATE: 20190228
